FAERS Safety Report 5293629-2 (Version None)
Quarter: 2007Q2

REPORT INFORMATION
  Report Type: 
  Country: None (occurrence: None)
  Receive Date: 20070411
  Receipt Date: 20070404
  Transmission Date: 20071010
  Serious: Yes (Disabling)
  Sender: FDA-Public Use
  Company Number: US-BOEHRINGER INGELHEIM PHARMACEUTICALS, INC.-2007-BP-02773BP

PATIENT
  Age: 91 Year
  Sex: Male

DRUGS (13)
  1. FLOMAX [Suspect]
     Indication: PROSTATE CANCER
     Route: 048
     Dates: start: 20050429
  2. FLOMAX [Suspect]
     Indication: PROSTATE EXAMINATION ABNORMAL
  3. FLOMAX [Suspect]
     Indication: BLADDER OBSTRUCTION
  4. FLOMAX [Suspect]
     Indication: BENIGN PROSTATIC HYPERPLASIA
  5. THYROID MEDICINE [Concomitant]
  6. DOXAZOSIN MESYLATE [Concomitant]
  7. COZAAR [Concomitant]
  8. SPIRONOLACTONE [Concomitant]
  9. XALATAN [Concomitant]
  10. LEVOBUNOLOL [Concomitant]
  11. ANDROGEL [Concomitant]
  12. URISED [Concomitant]
  13. VIAGRA [Concomitant]

REACTIONS (3)
  - BLINDNESS [None]
  - CATARACT [None]
  - VISUAL ACUITY REDUCED [None]
